FAERS Safety Report 14035272 (Version 2)
Quarter: 2017Q4

REPORT INFORMATION
  Report Type: Spontaneous
  Country: US (occurrence: US)
  Receive Date: 20171003
  Receipt Date: 20171120
  Transmission Date: 20180321
  Serious: Yes (Hospitalization)
  Sender: FDA-Public Use
  Company Number: US-VIFOR (INTERNATIONAL) INC.-VIT-2017-10040

PATIENT
  Age: 69 Year
  Sex: Male

DRUGS (16)
  1. FENOFIBRIC ACID. [Concomitant]
     Active Substance: FENOFIBRIC ACID
  2. FUROSEMIDE. [Concomitant]
     Active Substance: FUROSEMIDE
  3. HUMALOG [Concomitant]
     Active Substance: INSULIN LISPRO
  4. TRADJENTA [Concomitant]
     Active Substance: LINAGLIPTIN
  5. AMIODARONE HYDROCHLORIDE. [Concomitant]
     Active Substance: AMIODARONE HYDROCHLORIDE
  6. VELTASSA [Suspect]
     Active Substance: PATIROMER
     Indication: HYPERKALAEMIA
     Route: 048
     Dates: start: 20160302
  7. COUMADIN [Concomitant]
     Active Substance: WARFARIN SODIUM
  8. ATORVASTATIN CALCIUM. [Concomitant]
     Active Substance: ATORVASTATIN CALCIUM
  9. LANTUS [Concomitant]
     Active Substance: INSULIN GLARGINE
  10. ENTRESTO [Concomitant]
     Active Substance: SACUBITRIL\VALSARTAN
  11. METOPROLOL TARTRATE. [Concomitant]
     Active Substance: METOPROLOL TARTRATE
  12. SODIUM BICARBONATE. [Concomitant]
     Active Substance: SODIUM BICARBONATE
  13. ISOSORBIDE DINITRATE. [Concomitant]
     Active Substance: ISOSORBIDE DINITRATE
  14. ASPIRIN. [Concomitant]
     Active Substance: ASPIRIN
  15. LISINOPRIL. [Concomitant]
     Active Substance: LISINOPRIL
  16. GLIPIZIDE. [Concomitant]
     Active Substance: GLIPIZIDE

REACTIONS (2)
  - Cellulitis [Unknown]
  - Hypotension [Unknown]

NARRATIVE: CASE EVENT DATE: 20170817
